FAERS Safety Report 4310315-3 (Version None)
Quarter: 2004Q1

REPORT INFORMATION
  Report Type: 
  Country: None (occurrence: None)
  Receive Date: 20040302
  Receipt Date: 20040302
  Transmission Date: 20041129
  Serious: Yes (Other)
  Sender: FDA-Public Use
  Company Number: None

PATIENT
  Age: 13 Year
  Sex: Female
  Weight: 54.4316 kg

DRUGS (5)
  1. CORICIDIN D SRT [Suspect]
     Indication: NASOPHARYNGITIS
     Dosage: 1-2/DAY ORAL
     Route: 048
  2. PROZAC [Concomitant]
  3. ALBUTEROL [Concomitant]
  4. ZITHROMAX [Concomitant]
  5. BENADRYL [Concomitant]

REACTIONS (12)
  - CONVULSION [None]
  - COUGH [None]
  - DIFFICULTY IN WALKING [None]
  - DYSKINESIA [None]
  - EYE PAIN [None]
  - HEADACHE [None]
  - MUSCLE TWITCHING [None]
  - OVERDOSE [None]
  - PARALYSIS [None]
  - PARKINSON'S DISEASE [None]
  - PNEUMONIA [None]
  - PYREXIA [None]
